FAERS Safety Report 7034780-6 (Version None)
Quarter: 2010Q4

REPORT INFORMATION
  Report Type: 
  Country: None (occurrence: None)
  Receive Date: 20101008
  Receipt Date: 20101004
  Transmission Date: 20110411
  Serious: Yes (Other)
  Sender: FDA-Public Use
  Company Number: PHHY2010HR65860

PATIENT
  Age: 59 Year
  Sex: Male

DRUGS (7)
  1. LESCOL XL [Suspect]
     Dosage: 84.24 MG
     Route: 048
     Dates: start: 20071101, end: 20080901
  2. SANDIMMUNE [Concomitant]
     Dosage: UNK
  3. CELLCEPT [Concomitant]
     Dosage: UNK
  4. DECORTIN [Concomitant]
     Dosage: UNK
  5. LACIPIL [Concomitant]
     Dosage: UNK
  6. DIOVAN HCT [Concomitant]
     Dosage: UNK
  7. CARVEDILOL [Concomitant]
     Dosage: UNK

REACTIONS (5)
  - ALANINE AMINOTRANSFERASE INCREASED [None]
  - ASPARTATE AMINOTRANSFERASE INCREASED [None]
  - BLOOD CREATINE PHOSPHOKINASE INCREASED [None]
  - GLOMERULONEPHRITIS CHRONIC [None]
  - MYALGIA [None]
